FAERS Safety Report 12606332 (Version 2)
Quarter: 2016Q3

REPORT INFORMATION
  Report Type: Spontaneous
  Country: CA (occurrence: CA)
  Receive Date: 20160729
  Receipt Date: 20160826
  Transmission Date: 20161109
  Serious: Yes (Other)
  Sender: FDA-Public Use
  Company Number: CA-009507513-1607CAN011071

PATIENT
  Age: 67 Year
  Sex: Male
  Weight: 91 kg

DRUGS (4)
  1. CUBICIN [Suspect]
     Active Substance: DAPTOMYCIN
     Dosage: 570 MG, QD
     Route: 042
     Dates: start: 20160415, end: 20160509
  2. CUBICIN [Suspect]
     Active Substance: DAPTOMYCIN
     Dosage: 900 MG, QD
     Route: 042
     Dates: start: 20160516, end: 20160722
  3. MEROPENEM. [Concomitant]
     Active Substance: MEROPENEM
     Indication: ABDOMINAL ABSCESS
     Dosage: 1 G, Q8H
     Route: 042
     Dates: start: 20160709, end: 20160729
  4. FLUCONAZOLE. [Concomitant]
     Active Substance: FLUCONAZOLE
     Indication: ABDOMINAL ABSCESS
     Dosage: 400 MG, QD
     Route: 048
     Dates: start: 20160516, end: 20160720

REACTIONS (1)
  - Pathogen resistance [Not Recovered/Not Resolved]

NARRATIVE: CASE EVENT DATE: 20160714
